FAERS Safety Report 25927242 (Version 1)
Quarter: 2025Q4

REPORT INFORMATION
  Report Type: Spontaneous
  Country: US (occurrence: US)
  Receive Date: 20251015
  Receipt Date: 20251015
  Transmission Date: 20260117
  Serious: Yes (Life-Threatening, Other)
  Sender: FOUNDATION CONSUMER HEALTHCARE, LLC
  Company Number: US-FOUNDATIONCONSUMERHC-2025-US-046294

PATIENT
  Sex: Female

DRUGS (1)
  1. PLAN B ONE-STEP [Suspect]
     Active Substance: LEVONORGESTREL
     Indication: Post coital contraception
     Dosage: 1 TABLET IN 2016, 1 TABLET IN 2024
     Route: 048
     Dates: start: 2016, end: 2024

REACTIONS (5)
  - Salpingectomy [Unknown]
  - Infertility [Unknown]
  - Drug ineffective [Unknown]
  - Ectopic pregnancy [Unknown]
  - Depression [Unknown]

NARRATIVE: CASE EVENT DATE: 20160101
